FAERS Safety Report 8303936-4 (Version None)
Quarter: 2012Q2

REPORT INFORMATION
  Report Type: 
  Country: None (occurrence: None)
  Receive Date: 20120423
  Receipt Date: 20120418
  Transmission Date: 20120825
  Serious: Yes (Hospitalization, Other)
  Sender: FDA-Public Use
  Company Number: PHEH2009US09109

PATIENT
  Sex: Female

DRUGS (24)
  1. ZOMETA [Suspect]
     Indication: MULTIPLE MYELOMA
     Dosage: 4 MG, QMO
     Dates: end: 20050501
  2. AREDIA [Suspect]
     Indication: MULTIPLE MYELOMA
     Route: 042
  3. ZOLOFT [Concomitant]
  4. ARANESP [Concomitant]
  5. TETRACYCLINE HYDROCHLORIDE [Concomitant]
  6. IMMUNOSUPPRESSANTS [Concomitant]
  7. PLAQUENIL [Concomitant]
  8. PROTONIX [Concomitant]
     Dosage: 40 MG, QD
     Route: 048
  9. NIFEREX [Concomitant]
     Dosage: 150 MG, QD
     Route: 048
  10. NEXIUM [Concomitant]
  11. SODIUM BICARBONATE [Concomitant]
  12. AMITRIPTYLINE HCL [Concomitant]
  13. PERCOCET [Concomitant]
  14. COZAAR [Concomitant]
  15. HYDROCORTISONE [Concomitant]
     Dosage: 1 DF, Q4H, PRN
     Route: 048
  16. ASCORBIC ACID [Concomitant]
  17. CLINDAMYCIN [Concomitant]
     Dosage: 2 DF, TID
  18. KEFLEX [Concomitant]
  19. PREDNISONE TAB [Concomitant]
  20. ARICEPT [Concomitant]
  21. COREG [Concomitant]
  22. HYDROCODONE BITARTRATE [Concomitant]
  23. GLUCOSAMINE [Concomitant]
  24. DIATX [Concomitant]

REACTIONS (64)
  - INFECTION [None]
  - PRIMARY SEQUESTRUM [None]
  - PERICARDIAL EFFUSION [None]
  - PANIC ATTACK [None]
  - ANXIETY [None]
  - MOUTH ULCERATION [None]
  - PNEUMONIA [None]
  - OSTEOARTHRITIS [None]
  - ARTHRALGIA [None]
  - PAIN IN EXTREMITY [None]
  - IDIOPATHIC THROMBOCYTOPENIC PURPURA [None]
  - HERPES ZOSTER [None]
  - OSTEONECROSIS [None]
  - PELVIC FRACTURE [None]
  - HYPOTENSION [None]
  - PROTEINURIA [None]
  - NECROSIS [None]
  - GINGIVAL PAIN [None]
  - RIGHT ATRIAL DILATATION [None]
  - MITRAL VALVE INCOMPETENCE [None]
  - CONGESTIVE CARDIOMYOPATHY [None]
  - PARALYSIS [None]
  - MALNUTRITION [None]
  - LOWER EXTREMITY MASS [None]
  - TACHYCARDIA [None]
  - ANAEMIA [None]
  - HYPERKERATOSIS [None]
  - WEIGHT DECREASED [None]
  - PLEURAL EFFUSION [None]
  - PAIN [None]
  - DEFORMITY [None]
  - ORAL PAIN [None]
  - EXPOSED BONE IN JAW [None]
  - PERONEAL NERVE PALSY [None]
  - CARDIAC TAMPONADE [None]
  - SKIN ULCER [None]
  - FALL [None]
  - DEPRESSION [None]
  - SEROSITIS [None]
  - UPPER RESPIRATORY TRACT INFECTION [None]
  - DYSPNOEA [None]
  - TRICUSPID VALVE INCOMPETENCE [None]
  - PLEURISY [None]
  - METABOLIC ACIDOSIS [None]
  - HAEMATOMA [None]
  - HYPOAESTHESIA [None]
  - RENAL FAILURE [None]
  - OSTEONECROSIS OF JAW [None]
  - GENERAL PHYSICAL HEALTH DETERIORATION [None]
  - HYPERTENSION [None]
  - OSTEOMYELITIS [None]
  - PHOTOSENSITIVITY REACTION [None]
  - OSTEOPENIA [None]
  - RENAL ATROPHY [None]
  - HOMOCYSTINAEMIA [None]
  - DEAFNESS [None]
  - GASTROOESOPHAGEAL REFLUX DISEASE [None]
  - OTORRHOEA [None]
  - CARDIAC FAILURE CONGESTIVE [None]
  - PERICARDITIS [None]
  - NEUROPATHY PERIPHERAL [None]
  - LIMB INJURY [None]
  - OSTEOPOROSIS [None]
  - INTERSTITIAL LUNG DISEASE [None]
